FAERS Safety Report 24073560 (Version 1)
Quarter: 2024Q3

REPORT INFORMATION
  Report Type: Other
  Country: DE (occurrence: DE)
  Receive Date: 20240710
  Receipt Date: 20240710
  Transmission Date: 20241017
  Serious: Yes (Congenital Anomaly, Other)
  Sender: LUPIN
  Company Number: DE-EMBRYOTOX-202303590

PATIENT

DRUGS (4)
  1. QUETIAPINE [Suspect]
     Active Substance: QUETIAPINE
     Indication: Sleep disorder
     Dosage: 25 MG, QD (INTAKE QUESTIONABLE)
     Route: 064
  2. BISOPROLOL [Suspect]
     Active Substance: BISOPROLOL\BISOPROLOL FUMARATE
     Indication: Tachycardia
     Dosage: 5 MG, QD
     Route: 064
     Dates: start: 20230301, end: 20231115
  3. TRIMIPRAMINE [Suspect]
     Active Substance: TRIMIPRAMINE
     Indication: Sleep disorder
     Dosage: 75 MG, QD (75 MG AT ONSET OF PFREGNANCY, SSW 7.1:  REDUCED TO 25 MG/D )
     Route: 064
  4. LEVOTHYROXINE SODIUM [Concomitant]
     Active Substance: LEVOTHYROXINE SODIUM
     Indication: Autoimmune thyroiditis
     Dosage: 125 MICROGRAM
     Route: 064
     Dates: start: 20230301, end: 20231115

REACTIONS (2)
  - Hypospadias [Unknown]
  - Foetal exposure during pregnancy [Unknown]

NARRATIVE: CASE EVENT DATE: 20231101
